FAERS Safety Report 18863888 (Version 1)
Quarter: 2021Q1

REPORT INFORMATION
  Report Type: Spontaneous
  Country: US (occurrence: US)
  Receive Date: 20210209
  Receipt Date: 20210209
  Transmission Date: 20210420
  Serious: No
  Sender: FDA-Public Use
  Company Number: US-009507513-2101USA006102

PATIENT
  Sex: Male

DRUGS (1)
  1. BELSOMRA [Suspect]
     Active Substance: SUVOREXANT
     Indication: INSOMNIA
     Dosage: 20 MILLIGRAM, HS
     Route: 048

REACTIONS (4)
  - Dry throat [Unknown]
  - Labelled drug-food interaction medication error [Unknown]
  - Nightmare [Unknown]
  - Middle insomnia [Unknown]
